FAERS Safety Report 23403795 (Version 2)
Quarter: 2024Q1

REPORT INFORMATION
  Report Type: Spontaneous
  Country: IT (occurrence: IT)
  Receive Date: 20240116
  Receipt Date: 20240326
  Transmission Date: 20240410
  Serious: Yes (Other)
  Sender: FDA-Public Use
  Company Number: IT-SUN PHARMACEUTICAL INDUSTRIES LTD-2024RR-426875

PATIENT
  Age: 51 Year
  Sex: Female

DRUGS (3)
  1. ESOMEPRAZOLE [Suspect]
     Active Substance: ESOMEPRAZOLE
     Indication: Product used for unknown indication
     Dosage: 40 MILLIGRAM, UNK
     Route: 048
     Dates: start: 202306, end: 202306
  2. TICHE [Concomitant]
     Indication: Autoimmune thyroiditis
     Dosage: CAPSULE, SOFT, 88 MG MONDAY TO FRIDAY 100 MG FRIDAY TO SUNDAY
     Route: 048
  3. CALCIFEDIOL [Concomitant]
     Active Substance: CALCIFEDIOL
     Indication: Autoimmune thyroiditis
     Dosage: ORAL DROPS, SOLUTION, 22 DROPS EVERY 7 DAYS
     Route: 048

REACTIONS (7)
  - Depressed level of consciousness [Recovered/Resolved]
  - Angioedema [Recovered/Resolved]
  - Anal sphincter atony [Recovered/Resolved]
  - Urticaria [Recovered/Resolved]
  - Throat tightness [Recovered/Resolved]
  - Depressed level of consciousness [Recovered/Resolved]
  - Urticaria [Recovered/Resolved]

NARRATIVE: CASE EVENT DATE: 20230601
